FAERS Safety Report 14658397 (Version 1)
Quarter: 2018Q1

REPORT INFORMATION
  Report Type: Spontaneous
  Country: US (occurrence: US)
  Receive Date: 20180320
  Receipt Date: 20180320
  Transmission Date: 20180509
  Serious: No
  Sender: FDA-Public Use
  Company Number: US-PFIZER INC-2018110043

PATIENT
  Age: 68 Year
  Sex: Male
  Weight: 88.45 kg

DRUGS (1)
  1. ADVIL LIQUI-GELS [Suspect]
     Active Substance: IBUPROFEN
     Dosage: 200 MG, UNK
     Route: 048

REACTIONS (2)
  - Oral discomfort [Unknown]
  - Intentional product misuse [Unknown]
